FAERS Safety Report 13153233 (Version 1)
Quarter: 2017Q1

REPORT INFORMATION
  Report Type: Spontaneous
  Country: FR (occurrence: FR)
  Receive Date: 20170126
  Receipt Date: 20170126
  Transmission Date: 20170428
  Serious: Yes (Hospitalization)
  Sender: FDA-Public Use
  Company Number: FR-009507513-1701FRA009674

PATIENT
  Age: 35 Year
  Sex: Male

DRUGS (16)
  1. MIDAZOLAM [Suspect]
     Active Substance: MIDAZOLAM HYDROCHLORIDE
     Indication: SEDATION
     Dosage: UNK
     Route: 042
     Dates: start: 20161007, end: 20161107
  2. LASILIX [Concomitant]
     Active Substance: FUROSEMIDE
  3. CANCIDAS [Suspect]
     Active Substance: CASPOFUNGIN ACETATE
     Indication: INFECTION
     Dosage: UNK
     Route: 042
     Dates: start: 20161030, end: 20161110
  4. CEFEPIME [Suspect]
     Active Substance: CEFEPIME HYDROCHLORIDE
     Indication: INFECTION
     Dosage: UNK
     Route: 042
     Dates: start: 20161013, end: 20161030
  5. VANCOMYCINE SANDOZ [Suspect]
     Active Substance: VANCOMYCIN
     Indication: INFECTION
     Dosage: UNK
     Route: 042
     Dates: start: 20161021, end: 20161110
  6. LACTEOL [Suspect]
     Active Substance: LACTOBACILLUS ACIDOPHILUS
     Indication: DIARRHOEA
     Dosage: 1 DF, QD
     Route: 048
     Dates: start: 20161030, end: 20161102
  7. ESOMEPRAZOLE [Concomitant]
     Active Substance: ESOMEPRAZOLE
  8. EUPRESSYL [Concomitant]
     Active Substance: URAPIDIL
  9. TRANXENE T-TAB [Concomitant]
     Active Substance: CLORAZEPATE DIPOTASSIUM
  10. IMIPENEM AND CILASTATIN [Suspect]
     Active Substance: CILASTATIN SODIUM\IMIPENEM
     Indication: INFECTION
     Dosage: UNK
     Route: 042
     Dates: start: 20161030, end: 20161112
  11. AMIKACINE MYLAN [Suspect]
     Active Substance: AMIKACIN
     Indication: INFECTION
     Dosage: UNK
     Route: 042
     Dates: start: 20161030, end: 20161102
  12. PANTOPRAZOLE [Suspect]
     Active Substance: PANTOPRAZOLE SODIUM
     Dosage: 1 DF, QD
     Route: 048
     Dates: start: 20161030, end: 20161102
  13. ASPEGIC [Concomitant]
     Active Substance: ASPIRIN DL-LYSINE
  14. PERFALGAN [Concomitant]
     Active Substance: ACETAMINOPHEN
  15. SUFENTANIL [Concomitant]
     Active Substance: SUFENTANIL
  16. CORDARONE [Concomitant]
     Active Substance: AMIODARONE HYDROCHLORIDE

REACTIONS (3)
  - Acute generalised exanthematous pustulosis [Recovered/Resolved]
  - Face oedema [Recovered/Resolved]
  - Eczema [Recovered/Resolved]

NARRATIVE: CASE EVENT DATE: 20161111
